FAERS Safety Report 5337761-3 (Version None)
Quarter: 2007Q2

REPORT INFORMATION
  Report Type: 
  Country: None (occurrence: None)
  Receive Date: 20070308
  Receipt Date: 20061222
  Transmission Date: 20071010
  Serious: No
  Sender: FDA-Public Use
  Company Number: 2006-BP-14947BP

PATIENT
  Sex: Male

DRUGS (5)
  1. SPIRIVA [Suspect]
     Indication: CHRONIC OBSTRUCTIVE PULMONARY DISEASE
     Dosage: 18 MCG (18 MCG), IH
     Route: 055
  2. PULMICORT [Concomitant]
  3. XOPENEX [Concomitant]
  4. TAPAZOLE [Concomitant]
  5. DIGOXIN [Concomitant]

REACTIONS (2)
  - HALLUCINATION, VISUAL [None]
  - VISION BLURRED [None]
